FAERS Safety Report 15139181 (Version 2)
Quarter: 2018Q4

REPORT INFORMATION
  Report Type: Spontaneous
  Country: US (occurrence: US)
  Receive Date: 20180713
  Receipt Date: 20181008
  Transmission Date: 20190204
  Serious: No
  Sender: FDA-Public Use
  Company Number: US-JNJFOC-20180700439

PATIENT
  Age: 71 Year
  Sex: Female

DRUGS (1)
  1. FENTANYL. [Suspect]
     Active Substance: FENTANYL
     Indication: NEOPLASM MALIGNANT
     Route: 062
     Dates: start: 20180625

REACTIONS (1)
  - Product complaint [Recovered/Resolved]

NARRATIVE: CASE EVENT DATE: 20180626
